FAERS Safety Report 5524679-6 (Version None)
Quarter: 2007Q4

REPORT INFORMATION
  Report Type: 
  Country: None (occurrence: None)
  Receive Date: 20071123
  Receipt Date: 20071108
  Transmission Date: 20080405
  Serious: Yes (Death, Hospitalization, Other)
  Sender: FDA-Public Use
  Company Number: JP-ROCHE-531854

PATIENT
  Age: 65 Year
  Sex: Female

DRUGS (8)
  1. HORIZON [Suspect]
     Route: 042
     Dates: start: 20071030, end: 20071030
  2. CEFZON [Concomitant]
     Indication: SUBCUTANEOUS ABSCESS
     Route: 048
     Dates: start: 20071023, end: 20071028
  3. LOXONIN [Concomitant]
     Indication: SUBCUTANEOUS ABSCESS
     Route: 048
     Dates: start: 20071023, end: 20071027
  4. CYTOTEC [Concomitant]
     Indication: SUBCUTANEOUS ABSCESS
     Route: 048
     Dates: start: 20071023, end: 20071027
  5. LOCHOL [Concomitant]
     Indication: HYPERCHOLESTEROLAEMIA
     Route: 048
     Dates: start: 20070329, end: 20071028
  6. BLOPRESS [Concomitant]
     Indication: HYPERTENSION
     Route: 048
     Dates: start: 20070329, end: 20071028
  7. CALBLOCK [Concomitant]
     Indication: HYPERTENSION
     Route: 048
     Dates: start: 20070329, end: 20071028
  8. FOY [Concomitant]
     Dates: start: 20071029

REACTIONS (6)
  - BLOOD PRESSURE DECREASED [None]
  - CARDIAC ARREST [None]
  - CONDITION AGGRAVATED [None]
  - CONVULSION [None]
  - GLOSSOPTOSIS [None]
  - HEPATITIS FULMINANT [None]
